FAERS Safety Report 15450746 (Version 4)
Quarter: 2019Q1

REPORT INFORMATION
  Report Type: Report from Study
  Country: US (occurrence: US)
  Receive Date: 20181001
  Receipt Date: 20190126
  Transmission Date: 20190417
  Serious: Yes (Other)
  Sender: FDA-Public Use
  Company Number: PHEH2018US039944

PATIENT
  Sex: Female

DRUGS (1)
  1. COSENTYX [Suspect]
     Active Substance: SECUKINUMAB
     Indication: PSORIATIC ARTHROPATHY
     Dosage: 150 MG, QMO
     Route: 058

REACTIONS (15)
  - Nasopharyngitis [Recovering/Resolving]
  - Psoriatic arthropathy [Unknown]
  - Epicondylitis [Unknown]
  - Abdominal discomfort [Unknown]
  - Connective tissue disorder [Unknown]
  - Hypoaesthesia [Unknown]
  - Muscle spasms [Unknown]
  - Therapeutic response shortened [Unknown]
  - Neck pain [Not Recovered/Not Resolved]
  - Back disorder [Unknown]
  - Intervertebral disc degeneration [Unknown]
  - Spondyloarthropathy [Unknown]
  - Pain [Unknown]
  - Fibromyalgia [Unknown]
  - Nerve compression [Unknown]
